FAERS Safety Report 8517640-0 (Version None)
Quarter: 2012Q3

REPORT INFORMATION
  Report Type: 
  Country: None (occurrence: None)
  Receive Date: 20120718
  Receipt Date: 20120716
  Transmission Date: 20120928
  Serious: No
  Sender: FDA-Public Use
  Company Number: US-BAYER-2012-071489

PATIENT
  Sex: Male
  Weight: 93.424 kg

DRUGS (3)
  1. VITAMIN D [Concomitant]
     Dosage: 1000 UNIT, UNK
     Route: 048
  2. MULTI-VITAMIN [Concomitant]
     Route: 048
  3. BETASERON [Suspect]
     Dosage: 0.3 MG, QOD
     Route: 058

REACTIONS (1)
  - BLOOD PRESSURE INCREASED [None]
